FAERS Safety Report 13548806 (Version 1)
Quarter: 2017Q2

REPORT INFORMATION
  Report Type: Spontaneous
  Country: CL (occurrence: CL)
  Receive Date: 20170516
  Receipt Date: 20170516
  Transmission Date: 20170830
  Serious: Yes (Death)
  Sender: FDA-Public Use
  Company Number: CL-ORPHAN EUROPE-2020789

PATIENT
  Age: 2 Month
  Sex: Female
  Weight: .93 kg

DRUGS (3)
  1. L-CARNITINA [Concomitant]
     Active Substance: LEVOCARNITINE
     Dates: start: 20160624, end: 20160624
  2. GANCICLOVIR. [Concomitant]
     Active Substance: GANCICLOVIR
     Dates: start: 20160620
  3. CARBAGLU [Suspect]
     Active Substance: CARGLUMIC ACID
     Indication: HYPERAMMONAEMIA
     Route: 050
     Dates: start: 20160624

REACTIONS (2)
  - Hypotension [Fatal]
  - Bradycardia [Fatal]

NARRATIVE: CASE EVENT DATE: 20160624
